FAERS Safety Report 18414322 (Version 1)
Quarter: 2020Q4

REPORT INFORMATION
  Report Type: Spontaneous
  Country: FR (occurrence: FR)
  Receive Date: 20201022
  Receipt Date: 20201022
  Transmission Date: 20210114
  Serious: Yes (Hospitalization)
  Sender: FDA-Public Use
  Company Number: FR-ACCORD-205894

PATIENT
  Age: 51 Year
  Sex: Female

DRUGS (6)
  1. NAVELBINE [Suspect]
     Active Substance: VINORELBINE TARTRATE
     Indication: BREAST CANCER METASTATIC
     Route: 065
     Dates: start: 201310, end: 201404
  2. KADCYLA [Suspect]
     Active Substance: ADO-TRASTUZUMAB EMTANSINE
     Indication: BREAST CANCER METASTATIC
     Route: 042
     Dates: start: 201604, end: 201807
  3. ETOPOSIDE. [Suspect]
     Active Substance: ETOPOSIDE
     Indication: BREAST CANCER METASTATIC
     Route: 065
     Dates: start: 201811, end: 202008
  4. EPIRUBICIN [Suspect]
     Active Substance: EPIRUBICIN
     Indication: BREAST CANCER METASTATIC
     Dosage: 4 CYCLES
     Route: 042
     Dates: start: 201807, end: 201811
  5. CYCLOPHOSPHAMIDE/CYCLOPHOSPHAMIDE MONOHYDRATE [Suspect]
     Active Substance: CYCLOPHOSPHAMIDE
     Indication: BREAST CANCER METASTATIC
     Dosage: 4 CYCLES
     Route: 042
     Dates: start: 201807, end: 201811
  6. HERCEPTIN [Suspect]
     Active Substance: TRASTUZUMAB
     Indication: BREAST CANCER METASTATIC
     Route: 042
     Dates: start: 201110, end: 201604

REACTIONS (2)
  - Adenocarcinoma gastric [Not Recovered/Not Resolved]
  - Off label use [Unknown]

NARRATIVE: CASE EVENT DATE: 202006
